FAERS Safety Report 6526262-2 (Version None)
Quarter: 2010Q1

REPORT INFORMATION
  Report Type: 
  Country: None (occurrence: None)
  Receive Date: 20100104
  Receipt Date: 20091222
  Transmission Date: 20100710
  Serious: Yes (Other)
  Sender: FDA-Public Use
  Company Number: DE-BAUSCH-2009BL006723

PATIENT
  Age: 24 Year
  Sex: Female

DRUGS (14)
  1. PARACETAMOL [Suspect]
     Indication: ODYNOPHAGIA
  2. PARACETAMOL [Suspect]
     Indication: RHINITIS
  3. PARACETAMOL [Suspect]
     Indication: APATHY
  4. PARACETAMOL [Suspect]
     Indication: PYREXIA
  5. IBUPROFEN [Suspect]
     Indication: ODYNOPHAGIA
  6. IBUPROFEN [Suspect]
     Indication: RHINITIS
  7. IBUPROFEN [Suspect]
     Indication: APATHY
  8. IBUPROFEN [Suspect]
     Indication: PYREXIA
  9. ACETYLSALICYLIC ACID [Suspect]
     Indication: ODYNOPHAGIA
  10. ACETYLSALICYLIC ACID [Suspect]
     Indication: RHINITIS
  11. ACETYLSALICYLIC ACID [Suspect]
     Indication: APATHY
  12. ACETYLSALICYLIC ACID [Suspect]
     Indication: PYREXIA
  13. AMOXICILLIN [Suspect]
     Indication: OROPHARYNGEAL DISCOMFORT
  14. DICLOFENAC SODIUM [Suspect]
     Indication: OROPHARYNGEAL DISCOMFORT

REACTIONS (3)
  - C-REACTIVE PROTEIN INCREASED [None]
  - FUCHS' SYNDROME [None]
  - LEUKOCYTOSIS [None]
